FAERS Safety Report 10678179 (Version 1)
Quarter: 2014Q4

REPORT INFORMATION
  Report Type: Spontaneous
  Country: US (occurrence: None)
  Receive Date: 20141224
  Receipt Date: 20141224
  Transmission Date: 20150529
  Serious: No
  Sender: FDA-Public Use
  Company Number: None

PATIENT
  Age: 62 Year
  Sex: Female

DRUGS (1)
  1. SPRYCEL [Suspect]
     Active Substance: DASATINIB
     Indication: CHRONIC MYELOID LEUKAEMIA
     Dosage: STRENGTH: 100MG, DOSE FORM: ORAL, ROUTE: ORAL 047, FREQUENCY: DAILY
     Route: 048
     Dates: start: 20140822, end: 20141201

REACTIONS (1)
  - Treatment failure [None]

NARRATIVE: CASE EVENT DATE: 20141202
